FAERS Safety Report 20588958 (Version 1)
Quarter: 2022Q1

REPORT INFORMATION
  Report Type: Report from Study
  Country: CA (occurrence: CA)
  Receive Date: 20220314
  Receipt Date: 20220314
  Transmission Date: 20220423
  Serious: Yes (Other)
  Sender: FDA-Public Use
  Company Number: CA-BAUSCH-BL-2022-005721

PATIENT

DRUGS (4)
  1. CONTRAVE [Suspect]
     Active Substance: BUPROPION HYDROCHLORIDE\NALTREXONE HYDROCHLORIDE
     Indication: Weight control
     Dosage: 8MG/90MG, 1 TABLET QAM
     Route: 048
     Dates: start: 20220207, end: 20220213
  2. CONTRAVE [Suspect]
     Active Substance: BUPROPION HYDROCHLORIDE\NALTREXONE HYDROCHLORIDE
     Dosage: 8MG/90MG, 1 TABLET QAM, 1 TABLET QPM
     Route: 048
     Dates: start: 20220214, end: 20220220
  3. CONTRAVE [Suspect]
     Active Substance: BUPROPION HYDROCHLORIDE\NALTREXONE HYDROCHLORIDE
     Dosage: 8MG/90MG, 2 TABLET QAM, 1 TABLET QPM (1 IN 12 HR)
     Route: 048
     Dates: start: 20220221, end: 20220227
  4. CONTRAVE [Suspect]
     Active Substance: BUPROPION HYDROCHLORIDE\NALTREXONE HYDROCHLORIDE
     Dosage: 8MG/90MG, 2 TABLET QAM, 2 TABLET QPM
     Route: 048
     Dates: start: 20220228

REACTIONS (4)
  - Glaucoma [Not Recovered/Not Resolved]
  - Headache [Not Recovered/Not Resolved]
  - Dry mouth [Not Recovered/Not Resolved]
  - Thirst [Not Recovered/Not Resolved]

NARRATIVE: CASE EVENT DATE: 20220201
